FAERS Safety Report 19164756 (Version 1)
Quarter: 2021Q2

REPORT INFORMATION
  Report Type: Spontaneous
  Country: US (occurrence: US)
  Receive Date: 20210421
  Receipt Date: 20210421
  Transmission Date: 20210717
  Serious: No
  Sender: FDA-Public Use
  Company Number: US-SA-2021SA129513

PATIENT
  Age: 49 Year
  Sex: Female

DRUGS (7)
  1. FLUTICASONE. [Concomitant]
     Active Substance: FLUTICASONE
     Dosage: 50 UG/ AC (ACTUATION)
  2. HALOBETASOL [Concomitant]
     Active Substance: HALOBETASOL PROPIONATE
  3. VITAMIN D3 [Concomitant]
     Active Substance: CHOLECALCIFEROL
  4. DUPIXENT [Suspect]
     Active Substance: DUPILUMAB
     Indication: DERMATITIS ATOPIC
     Dosage: 1 PEN, QOW
     Route: 058
  5. TYLENOL [Concomitant]
     Active Substance: ACETAMINOPHEN
  6. IBUPROFEN. [Concomitant]
     Active Substance: IBUPROFEN
  7. LORATADINE. [Concomitant]
     Active Substance: LORATADINE

REACTIONS (4)
  - Dermatitis atopic [Unknown]
  - Skin haemorrhage [Unknown]
  - Inflammation [Unknown]
  - Dry skin [Unknown]

NARRATIVE: CASE EVENT DATE: 202104
